FAERS Safety Report 8339991 (Version 2)
Quarter: 2013Q2

REPORT INFORMATION
  Report Type: Spontaneous
  Country: US (occurrence: US)
  Receive Date: 20120117
  Receipt Date: 20130425
  Transmission Date: 20140414
  Serious: Yes (Other)
  Sender: FDA-Public Use
  Company Number: US-ASTRAZENECA-2012SE01140

PATIENT
  Age: 67 Year
  Sex: Female

DRUGS (43)
  1. NEXIUM [Suspect]
     Indication: GASTROOESOPHAGEAL REFLUX DISEASE
     Route: 048
     Dates: start: 200306
  2. PULMICORT [Suspect]
     Route: 055
  3. LASIX [Concomitant]
     Indication: OEDEMA
     Dates: start: 200806
  4. CARVEDILOL [Concomitant]
     Indication: HEART RATE ABNORMAL
     Dates: start: 200907
  5. CLONIDINE [Concomitant]
     Indication: BLOOD PRESSURE ABNORMAL
     Dates: start: 201004
  6. OXYGEN [Concomitant]
     Indication: CHRONIC OBSTRUCTIVE PULMONARY DISEASE
     Dosage: THREE LITRES CONSTANT
     Dates: start: 1999
  7. ADVAIR DISKUS [Concomitant]
     Indication: CHRONIC OBSTRUCTIVE PULMONARY DISEASE
     Dosage: 500/50 ONE PUFF TWICE DAILY
     Dates: start: 200707
  8. MAXAIR [Concomitant]
     Indication: CHRONIC OBSTRUCTIVE PULMONARY DISEASE
     Dosage: TWO PUFFS FOUR TIMES DAILY AS NEEDED
     Dates: start: 200102
  9. MUCINEX [Concomitant]
     Indication: CHRONIC OBSTRUCTIVE PULMONARY DISEASE
  10. IPRATROPIUM [Concomitant]
     Indication: CHRONIC OBSTRUCTIVE PULMONARY DISEASE
     Dosage: NEBULIZER 3-4 DAILY
     Route: 055
  11. LIPITOR [Concomitant]
     Indication: BLOOD CHOLESTEROL ABNORMAL
     Dates: start: 200906
  12. CALCIUM VITAMIN D [Concomitant]
     Indication: OSTEOPOROSIS
     Dosage: 600 MG/200 IU, 1 TABLET TWICE DAILY
     Dates: start: 199801
  13. IRON [Concomitant]
     Indication: ANAEMIA
     Dates: start: 201005
  14. VITAMIN C [Concomitant]
     Indication: ANAEMIA
  15. GLYBURIDE [Concomitant]
     Indication: DIABETES MELLITUS
     Dates: start: 200906
  16. LEVOTHYROXINE [Concomitant]
     Indication: HYPOTHYROIDISM
     Dates: start: 200906
  17. PROZAC [Concomitant]
     Indication: DEPRESSION
     Dates: start: 200906
  18. ALLOPURINOL [Concomitant]
     Indication: GOUT
     Dates: start: 201004
  19. XANAX [Concomitant]
     Indication: INSOMNIA
     Dates: start: 200305
  20. XANAX [Concomitant]
     Indication: ANXIETY
     Dates: start: 200305
  21. TYLENOL [Concomitant]
     Indication: MYALGIA
     Dosage: TWO TABLETS THREE TIMES A DAY AS NEEDED
  22. TYLENOL [Concomitant]
     Indication: MUSCLE SPASMS
     Dosage: TWO TABLETS THREE TIMES A DAY AS NEEDED
  23. TYLENOL [Concomitant]
     Indication: ARTHRALGIA
     Dosage: TWO TABLETS THREE TIMES A DAY AS NEEDED
  24. FLEXERIL [Concomitant]
     Indication: MYALGIA
     Dosage: ONE TABLET THREE TIMES A DAY AS NEEDED
     Dates: start: 200905
  25. FLEXERIL [Concomitant]
     Indication: MUSCLE SPASMS
     Dosage: ONE TABLET THREE TIMES A DAY AS NEEDED
     Dates: start: 200905
  26. FLEXERIL [Concomitant]
     Indication: ARTHRALGIA
     Dosage: ONE TABLET THREE TIMES A DAY AS NEEDED
     Dates: start: 200905
  27. CALCITROL [Concomitant]
     Indication: PARATHYROID DISORDER
     Dates: start: 2010
  28. ZYRTEC [Concomitant]
     Indication: MULTIPLE ALLERGIES
  29. COLACE [Concomitant]
     Indication: CONSTIPATION
     Dates: start: 201006
  30. FOLIC ACID [Concomitant]
     Indication: HERNIA
     Dates: start: 200907
  31. FOLIC ACID [Concomitant]
     Indication: CUSHING^S SYNDROME
     Dates: start: 200907
  32. FOLIC ACID [Concomitant]
     Indication: NEPHROPATHY
     Dates: start: 200907
  33. DOXYCYCLINE [Concomitant]
     Indication: BRONCHITIS CHRONIC
     Dosage: ONE TABLET TWICE DAILY AS NEEDED
     Dates: start: 2007
  34. METALAZONE [Concomitant]
     Indication: OEDEMA
     Dosage: AS DIRECTED FOR FLARE UP
  35. COLCHICINE [Concomitant]
     Indication: GOUT
     Dates: start: 200910
  36. DIAMOX [Concomitant]
     Indication: HEART RATE ABNORMAL
     Dosage: 250 MGS AS DIRECTED
  37. LIDODERM [Concomitant]
     Indication: MYALGIA
     Dosage: ONE PATCH FOR TWELVE HOURS AS NEEDED
     Dates: start: 200404
  38. LIDODERM [Concomitant]
     Indication: MUSCLE SPASMS
     Dosage: ONE PATCH FOR TWELVE HOURS AS NEEDED
     Dates: start: 200404
  39. LIDODERM [Concomitant]
     Indication: ARTHRALGIA
     Dosage: ONE PATCH FOR TWELVE HOURS AS NEEDED
     Dates: start: 200404
  40. LOTEMAX [Concomitant]
     Indication: NECROTISING SCLERITIS
     Dates: start: 200106
  41. PREDNISONE [Concomitant]
     Indication: NECROTISING SCLERITIS
  42. TIMOLOL [Concomitant]
     Indication: NECROTISING SCLERITIS
  43. POTASSIUM [Concomitant]
     Dates: start: 201009, end: 201011

REACTIONS (23)
  - Cushing^s syndrome [Unknown]
  - Renal impairment [Unknown]
  - Oedema [Unknown]
  - Anaemia [Unknown]
  - Chronic obstructive pulmonary disease [Unknown]
  - Diabetes mellitus [Unknown]
  - Heart rate abnormal [Unknown]
  - Blood pressure abnormal [Unknown]
  - Blood cholesterol abnormal [Unknown]
  - Hypothyroidism [Unknown]
  - Gout [Unknown]
  - Myalgia [Unknown]
  - Muscle spasms [Unknown]
  - Arthralgia [Unknown]
  - Parathyroid disorder [Unknown]
  - Multiple allergies [Unknown]
  - Constipation [Unknown]
  - Hernia [Unknown]
  - Bronchitis [Unknown]
  - Blood potassium abnormal [Unknown]
  - Depression [Unknown]
  - Adverse event [Unknown]
  - Off label use [Unknown]
